FAERS Safety Report 6303882-1 (Version None)
Quarter: 2009Q3

REPORT INFORMATION
  Report Type: 
  Country: None (occurrence: None)
  Receive Date: 20090807
  Receipt Date: 20090807
  Transmission Date: 20100115
  Serious: Yes (Hospitalization)
  Sender: FDA-Public Use
  Company Number: None

PATIENT
  Sex: Female
  Weight: 83.3 kg

DRUGS (4)
  1. FLUOROURACIL [Suspect]
     Dosage: 618 MG
     Dates: end: 20090722
  2. BEVACIZUMAB (RHUMAB VEGF) [Suspect]
     Dosage: 426 MG
     Dates: end: 20090722
  3. CAMPTOSAR [Suspect]
     Dosage: 232 MG
     Dates: end: 20090722
  4. LEUCOVORIN CALCIUM [Suspect]
     Dosage: 772 MG
     Dates: end: 20090722

REACTIONS (6)
  - ACCIDENT [None]
  - CHILLS [None]
  - INCISION SITE COMPLICATION [None]
  - INCISION SITE ERYTHEMA [None]
  - LACERATION [None]
  - PYREXIA [None]
